FAERS Safety Report 25445037 (Version 1)
Quarter: 2025Q2

REPORT INFORMATION
  Report Type: Spontaneous
  Country: RU (occurrence: RU)
  Receive Date: 20250617
  Receipt Date: 20250617
  Transmission Date: 20250717
  Serious: Yes (Other)
  Sender: RANBAXY
  Company Number: RU-SUN PHARMACEUTICAL INDUSTRIES INC-2025R1-512136

PATIENT
  Age: 22 Year
  Sex: Male

DRUGS (6)
  1. DOXORUBICIN [Suspect]
     Active Substance: DOXORUBICIN
     Indication: Primary mediastinal large B-cell lymphoma
     Route: 065
  2. PREDNISONE [Suspect]
     Active Substance: PREDNISONE
     Indication: Primary mediastinal large B-cell lymphoma
     Route: 065
  3. VINCRISTINE [Suspect]
     Active Substance: VINCRISTINE
     Indication: Primary mediastinal large B-cell lymphoma
     Route: 065
  4. RITUXIMAB [Suspect]
     Active Substance: RITUXIMAB
     Indication: Primary mediastinal large B-cell lymphoma
     Route: 065
  5. ETOPOSIDE [Suspect]
     Active Substance: ETOPOSIDE
     Indication: Primary mediastinal large B-cell lymphoma
     Route: 065
  6. CYCLOPHOSPHAMIDE [Suspect]
     Active Substance: CYCLOPHOSPHAMIDE
     Indication: Primary mediastinal large B-cell lymphoma
     Route: 065

REACTIONS (1)
  - Neoplasm recurrence [Unknown]

NARRATIVE: CASE EVENT DATE: 20181001
